FAERS Safety Report 7059406-7 (Version None)
Quarter: 2010Q4

REPORT INFORMATION
  Report Type: 
  Country: None (occurrence: None)
  Receive Date: 20101025
  Receipt Date: 20101015
  Transmission Date: 20110411
  Serious: Yes (Life-Threatening, Hospitalization)
  Sender: FDA-Public Use
  Company Number: DE-JNJFOC-20101004381

PATIENT
  Age: 68 Year
  Sex: Female
  Weight: 102 kg

DRUGS (12)
  1. DOLORMIN SCHMERZTABLETTEN [Suspect]
     Route: 048
  2. DOLORMIN SCHMERZTABLETTEN [Suspect]
     Indication: PAIN
     Dosage: AS NEEDED ON AN IRREGULAR BASIS
     Route: 048
  3. RAMIPRIL [Suspect]
     Indication: HYPERTENSION
     Route: 048
  4. BISOBETA [Suspect]
     Indication: CORONARY ARTERY DISEASE
     Route: 048
  5. TORASEMIDE [Suspect]
     Indication: HYPERTENSION
     Route: 048
  6. XIPAMIDE [Suspect]
     Indication: HYPERTENSION
     Route: 048
  7. SPIRONOLACTONE [Suspect]
     Indication: CARDIAC FAILURE
     Route: 048
  8. ACETYLSALICYLIC ACID SRT [Suspect]
     Indication: CORONARY ARTERY DISEASE
  9. ACTRAPID PENFILL [Concomitant]
     Indication: TYPE 2 DIABETES MELLITUS
     Dosage: DAILY
  10. PRAVASTATIN [Concomitant]
     Indication: HYPERLIPIDAEMIA
     Route: 048
  11. PLAVIX [Concomitant]
     Indication: CORONARY ARTERY DISEASE
  12. PROTAPHAN HM [Concomitant]
     Indication: TYPE 2 DIABETES MELLITUS

REACTIONS (5)
  - ACTIVATED PARTIAL THROMBOPLASTIN TIME PROLONGED [None]
  - BLOOD BILIRUBIN INCREASED [None]
  - HAEMOGLOBIN DECREASED [None]
  - PULSE ABSENT [None]
  - RENAL FAILURE ACUTE [None]
